FAERS Safety Report 25248239 (Version 1)
Quarter: 2025Q2

REPORT INFORMATION
  Report Type: Spontaneous
  Country: BR (occurrence: BR)
  Receive Date: 20250429
  Receipt Date: 20250429
  Transmission Date: 20250717
  Serious: Yes (Hospitalization, Other)
  Sender: AMGEN
  Company Number: BR-AMGEN-BRASP2025081815

PATIENT
  Age: 41 Year
  Sex: Female

DRUGS (2)
  1. CINACALCET HYDROCHLORIDE [Suspect]
     Active Substance: CINACALCET HYDROCHLORIDE
     Indication: Chronic kidney disease
     Dosage: 120 MILLIGRAM, QD
     Route: 065
  2. SEVELAMER HYDROCHLORIDE [Concomitant]
     Active Substance: SEVELAMER HYDROCHLORIDE

REACTIONS (6)
  - Panniculitis [Unknown]
  - Calciphylaxis [Unknown]
  - Hyperparathyroidism [Not Recovered/Not Resolved]
  - Infection [Unknown]
  - Upper gastrointestinal haemorrhage [Unknown]
  - Hypoparathyroidism [Unknown]
